FAERS Safety Report 7130749-1 (Version None)
Quarter: 2010Q4

REPORT INFORMATION
  Report Type: 
  Country: None (occurrence: None)
  Receive Date: 20101201
  Receipt Date: 20101124
  Transmission Date: 20110411
  Serious: Yes (Other)
  Sender: FDA-Public Use
  Company Number: US-ROCHE-737544

PATIENT
  Sex: Female
  Weight: 73 kg

DRUGS (2)
  1. AVASTIN [Suspect]
     Route: 065
  2. TAXOL [Suspect]
     Route: 065

REACTIONS (2)
  - METASTASES TO LIVER [None]
  - METASTATIC NEOPLASM [None]
